FAERS Safety Report 7131270-7 (Version None)
Quarter: 2010Q4

REPORT INFORMATION
  Report Type: 
  Country: None (occurrence: None)
  Receive Date: 20101124
  Receipt Date: 20101124
  Transmission Date: 20110411
  Serious: Yes (Other)
  Sender: FDA-Public Use
  Company Number: None

PATIENT
  Age: 46 Year
  Sex: Male
  Weight: 157.3982 kg

DRUGS (1)
  1. LEVAQUIN [Suspect]
     Indication: INFECTION
     Dosage: 750MG QD PO
     Route: 048
     Dates: start: 20101116, end: 20101122

REACTIONS (3)
  - ARTHRALGIA [None]
  - BURNING SENSATION [None]
  - OEDEMA PERIPHERAL [None]
